FAERS Safety Report 7769225-1 (Version None)
Quarter: 2011Q3

REPORT INFORMATION
  Report Type: 
  Country: None (occurrence: None)
  Receive Date: 20110922
  Receipt Date: 20110913
  Transmission Date: 20111222
  Serious: Yes (Death)
  Sender: FDA-Public Use
  Company Number: US-ROCHE-769877

PATIENT
  Sex: Female
  Weight: 70 kg

DRUGS (2)
  1. BONIVA [Suspect]
     Indication: OSTEOPOROSIS
     Dosage: FREQUENCY: ONCE
     Route: 042
  2. ASPIRIN [Concomitant]
     Indication: CORONARY ARTERY DISEASE
     Route: 048

REACTIONS (3)
  - SMALL INTESTINAL OBSTRUCTION [None]
  - GASTROINTESTINAL HAEMORRHAGE [None]
  - GASTRITIS EROSIVE [None]
